FAERS Safety Report 16009379 (Version 3)
Quarter: 2019Q2

REPORT INFORMATION
  Report Type: Spontaneous
  Country: TH (occurrence: TH)
  Receive Date: 20190226
  Receipt Date: 20190429
  Transmission Date: 20190711
  Serious: Yes (Other)
  Sender: FDA-Public Use
  Company Number: TH-009507513-1902THA010992

PATIENT
  Age: 53 Year
  Sex: Female
  Weight: 45 kg

DRUGS (9)
  1. CASPOFUNGIN ACETATE. [Concomitant]
     Active Substance: CASPOFUNGIN ACETATE
     Indication: MUCORMYCOSIS
  2. AMPHOTERICIN B. [Concomitant]
     Active Substance: AMPHOTERICIN B
     Indication: ANTIFUNGAL TREATMENT
     Dosage: UNK
  3. AMPHOTERICIN B. [Concomitant]
     Active Substance: AMPHOTERICIN B
     Dosage: 1.5 MKD DOSE,
     Route: 042
     Dates: start: 20150610, end: 20150730
  4. DEFERIPRONE [Concomitant]
     Active Substance: DEFERIPRONE
     Indication: MUCORMYCOSIS
  5. POSACONAZOLE [Suspect]
     Active Substance: POSACONAZOLE
     Indication: MUCORMYCOSIS
  6. CASPOFUNGIN ACETATE. [Concomitant]
     Active Substance: CASPOFUNGIN ACETATE
     Indication: ANTIFUNGAL TREATMENT
     Dosage: 70 MILLIGRAM
     Route: 042
     Dates: start: 20150610, end: 20150705
  7. AMPHOTERICIN B. [Concomitant]
     Active Substance: AMPHOTERICIN B
     Indication: MUCORMYCOSIS
     Dosage: 1 MKD,
     Route: 042
     Dates: start: 20150608, end: 20150609
  8. POSACONAZOLE [Suspect]
     Active Substance: POSACONAZOLE
     Indication: ANTIFUNGAL TREATMENT
     Dosage: 5 MILLILITER, TID
     Route: 048
     Dates: start: 20150706, end: 20150729
  9. DEFERIPRONE [Concomitant]
     Active Substance: DEFERIPRONE
     Indication: ANTIFUNGAL TREATMENT
     Dosage: 100 MKD
     Route: 048
     Dates: start: 20150610, end: 20150824

REACTIONS (2)
  - Mucormycosis [Not Recovered/Not Resolved]
  - Drug ineffective [Unknown]
